FAERS Safety Report 9084305 (Version 1)
Quarter: 2013Q1

REPORT INFORMATION
  Report Type: Report from Study
  Country: US (occurrence: US)
  Receive Date: 20130131
  Receipt Date: 20130131
  Transmission Date: 20140127
  Serious: No
  Sender: FDA-Public Use
  Company Number: US-ABBOTT-12P-163-0999362-00

PATIENT
  Age: 50 Year
  Sex: Female
  Weight: 93.98 kg

DRUGS (5)
  1. HUMIRA [Suspect]
     Indication: PSORIASIS
  2. GENERIC ZANTAC [Concomitant]
     Indication: GASTROINTESTINAL DISORDER
  3. LORCET [Concomitant]
     Indication: PAIN IN EXTREMITY
  4. UNKNOWN INHALER [Concomitant]
     Indication: CHRONIC OBSTRUCTIVE PULMONARY DISEASE
  5. UNKNOWN NEBULIZER [Concomitant]
     Indication: CHRONIC OBSTRUCTIVE PULMONARY DISEASE

REACTIONS (5)
  - Drug dose omission [Unknown]
  - Influenza [Not Recovered/Not Resolved]
  - Bronchitis [Recovered/Resolved]
  - Nasal congestion [Recovering/Resolving]
  - Cough [Recovering/Resolving]
